FAERS Safety Report 8822467 (Version 2)
Quarter: 2012Q4

REPORT INFORMATION
  Report Type: Report from Study
  Country: IE (occurrence: IE)
  Receive Date: 20121003
  Receipt Date: 20121213
  Transmission Date: 20130627
  Serious: Yes (Other)
  Sender: FDA-Public Use
  Company Number: IE-INCYTE CORPORATION-2012IN001949

PATIENT
  Age: 60 Year
  Sex: Female

DRUGS (17)
  1. INC424 [Suspect]
     Indication: MYELOFIBROSIS
     Dosage: 15 mg, bid
     Route: 048
     Dates: start: 20120502, end: 20120807
  2. INC424 [Suspect]
     Dosage: 20 mg, bid
     Route: 048
     Dates: start: 20120808
  3. TRANSFUSIONS [Concomitant]
  4. FENTANYL [Concomitant]
  5. ORAMORPH [Concomitant]
  6. PANTOPRAZOLE [Concomitant]
  7. FOLIC ACID [Concomitant]
  8. FLUCLOXACILLIN [Concomitant]
  9. LUSTRAL [Concomitant]
  10. ALLOPURINOL [Concomitant]
     Dosage: UNK
  11. FRUSEMIDE [Concomitant]
  12. XANAX [Concomitant]
  13. AMITRIPTYLINE [Concomitant]
  14. LYRICA [Concomitant]
  15. ZIMOVANE [Concomitant]
  16. IMODIUM [Concomitant]
  17. PROPANTHELINE [Concomitant]

REACTIONS (3)
  - Diarrhoea [Not Recovered/Not Resolved]
  - Blood lactate dehydrogenase increased [Unknown]
  - Splenomegaly [Not Recovered/Not Resolved]
